FAERS Safety Report 16326313 (Version 4)
Quarter: 2020Q1

REPORT INFORMATION
  Report Type: Report from Study
  Country: FR (occurrence: FR)
  Receive Date: 20190517
  Receipt Date: 20200220
  Transmission Date: 20200409
  Serious: Yes (Death, Hospitalization)
  Sender: FDA-Public Use
  Company Number: FR-JNJFOC-20190513600

PATIENT
  Age: 25 Year
  Sex: Male

DRUGS (5)
  1. ESCITALOPRAM [Concomitant]
     Active Substance: ESCITALOPRAM OXALATE
     Dosage: IN MORNING
     Route: 065
     Dates: start: 201802
  2. DEXAMETHASONE. [Concomitant]
     Active Substance: DEXAMETHASONE
     Route: 065
  3. DURVALUMAB. [Suspect]
     Active Substance: DURVALUMAB
     Indication: SOFT TISSUE SARCOMA
     Route: 042
     Dates: start: 20190314, end: 20190424
  4. ALPRAZOLAM. [Concomitant]
     Active Substance: ALPRAZOLAM
     Dosage: IN MORNING
     Route: 065
     Dates: start: 201802
  5. TRABECTEDIN [Suspect]
     Active Substance: TRABECTEDIN
     Indication: SOFT TISSUE SARCOMA
     Dosage: CYCLE 1 TO 3
     Route: 042
     Dates: start: 20190313, end: 20190423

REACTIONS (1)
  - Febrile bone marrow aplasia [Fatal]

NARRATIVE: CASE EVENT DATE: 20190502
